FAERS Safety Report 14587651 (Version 1)
Quarter: 2018Q1

REPORT INFORMATION
  Report Type: Spontaneous
  Country: US (occurrence: US)
  Receive Date: 20180301
  Receipt Date: 20180301
  Transmission Date: 20180509
  Serious: Yes (Hospitalization)
  Sender: FDA-Public Use
  Company Number: US-BRACCO-2017US04883

PATIENT
  Age: 50 Year
  Sex: Male

DRUGS (2)
  1. NITROPASTE [Concomitant]
     Active Substance: NITROGLYCERIN
  2. ISOVUE 370 [Suspect]
     Active Substance: IOPAMIDOL
     Indication: ANGIOGRAM
     Dosage: UNK UNK, SINGLE
     Dates: start: 20171026, end: 20171026

REACTIONS (2)
  - Dizziness [Unknown]
  - Chest discomfort [Unknown]

NARRATIVE: CASE EVENT DATE: 20171026
